FAERS Safety Report 7611777-6 (Version None)
Quarter: 2011Q3

REPORT INFORMATION
  Report Type: 
  Country: None (occurrence: None)
  Receive Date: 20110715
  Receipt Date: 20110705
  Transmission Date: 20111222
  Serious: Yes (Hospitalization)
  Sender: FDA-Public Use
  Company Number: CL-SANOFI-AVENTIS-2011SA043753

PATIENT
  Age: 70 Year
  Sex: Female
  Weight: 70 kg

DRUGS (7)
  1. CARVEDILOL [Concomitant]
  2. ATORVASTATIN [Concomitant]
  3. ENALAPRIL MALEATE [Concomitant]
  4. ACENOCOUMAROL [Concomitant]
  5. DRONEDARONE HCL [Suspect]
     Indication: ATRIAL FIBRILLATION
     Route: 048
     Dates: start: 20110606
  6. FUROSEMIDE [Concomitant]
  7. METFORMIN HCL [Concomitant]

REACTIONS (1)
  - ISCHAEMIC STROKE [None]
